FAERS Safety Report 4336485-9 (Version None)
Quarter: 2004Q2

REPORT INFORMATION
  Report Type: 
  Country: None (occurrence: None)
  Receive Date: 20040409
  Receipt Date: 20040409
  Transmission Date: 20050107
  Serious: Yes (Hospitalization)
  Sender: FDA-Public Use
  Company Number: None

PATIENT
  Age: 27 Year
  Sex: Male
  Weight: 81 kg

DRUGS (2)
  1. SULFAMETHOXAZOLE + TRIMETHOPRIM [Suspect]
     Indication: SINUSITIS
     Dosage: 800 /16 MG  BID    ORAL
     Route: 048
     Dates: start: 20040124, end: 20040201
  2. EFFEXOR XR [Concomitant]

REACTIONS (6)
  - EPISTAXIS [None]
  - HEADACHE [None]
  - PETECHIAE [None]
  - PLATELET COUNT DECREASED [None]
  - SINUS DISORDER [None]
  - TENDERNESS [None]
